FAERS Safety Report 11088174 (Version 1)
Quarter: 2015Q2

REPORT INFORMATION
  Report Type: Spontaneous
  Country: US (occurrence: None)
  Receive Date: 20150501
  Receipt Date: 20150501
  Transmission Date: 20150821
  Serious: Yes (Other)
  Sender: FDA-Public Use
  Company Number: None

PATIENT
  Age: 80 Year
  Sex: Female
  Weight: 99.79 kg

DRUGS (11)
  1. LORAZEPAM. [Suspect]
     Active Substance: LORAZEPAM
     Indication: BIPOLAR I DISORDER
     Route: 048
  2. HALOPERIDOL. [Concomitant]
     Active Substance: HALOPERIDOL
  3. ATIVAN [Suspect]
     Active Substance: LORAZEPAM
     Indication: BIPOLAR DISORDER
     Dosage: 2 MG?1 PILL AT BEDTIME?AT BEDTIME?BY MOUTH?THERAPY?15 YEAR OR MORE ?STILL USING
     Route: 048
  4. ATIVAN [Suspect]
     Active Substance: LORAZEPAM
     Indication: BIPOLAR I DISORDER
     Dosage: 2 MG?1 PILL AT BEDTIME?AT BEDTIME?BY MOUTH?THERAPY?15 YEAR OR MORE ?STILL USING
     Route: 048
  5. COGENTIN [Concomitant]
     Active Substance: BENZTROPINE MESYLATE
  6. TRILEPTAL [Concomitant]
     Active Substance: OXCARBAZEPINE
  7. ATIVAN [Suspect]
     Active Substance: LORAZEPAM
     Indication: MENTAL DISORDER
     Dosage: 2 MG?1 PILL AT BEDTIME?AT BEDTIME?BY MOUTH?THERAPY?15 YEAR OR MORE ?STILL USING
     Route: 048
  8. LORAZEPAM. [Suspect]
     Active Substance: LORAZEPAM
     Indication: MENTAL DISORDER
     Route: 048
  9. LORAZEPAM. [Suspect]
     Active Substance: LORAZEPAM
     Indication: BIPOLAR DISORDER
     Route: 048
  10. LORAZEPAM. [Suspect]
     Active Substance: LORAZEPAM
     Indication: SCHIZOPHRENIA
     Route: 048
  11. ATIVAN [Suspect]
     Active Substance: LORAZEPAM
     Indication: SCHIZOPHRENIA
     Dosage: 2 MG?1 PILL AT BEDTIME?AT BEDTIME?BY MOUTH?THERAPY?15 YEAR OR MORE ?STILL USING
     Route: 048

REACTIONS (16)
  - Amnesia [None]
  - Hypoaesthesia [None]
  - Constipation [None]
  - Headache [None]
  - Dizziness [None]
  - Vision blurred [None]
  - Rash [None]
  - Chest pain [None]
  - Musculoskeletal stiffness [None]
  - Nervousness [None]
  - Cardiac flutter [None]
  - Breast pain [None]
  - Pain [None]
  - Dyspnoea [None]
  - Extrasystoles [None]
  - Vertigo [None]

NARRATIVE: CASE EVENT DATE: 20150420
